FAERS Safety Report 8121598 (Version 2)
Quarter: 2012Q4

REPORT INFORMATION
  Report Type: 
  Country: US (occurrence: US)
  Receive Date: 20110906
  Receipt Date: 20121227
  Transmission Date: 20130627
  Serious: Yes (Death, Hospitalization, Disabling)
  Sender: FDA-Public Use
  Company Number: US-GLAXOSMITHKLINE-A0922517A

PATIENT
  Age: 76 Year
  Sex: Female

DRUGS (1)
  1. AVANDIA [Suspect]
     Indication: TYPE 2 DIABETES MELLITUS
     Dosage: 4MG Twice per day
     Route: 048
     Dates: start: 200503, end: 200605

REACTIONS (11)
  - Cerebrovascular accident [Fatal]
  - Coma [Unknown]
  - Paralysis [Unknown]
  - Cerebrovascular accident [Unknown]
  - Cardiovascular disorder [Unknown]
  - Visual acuity reduced [Unknown]
  - Loss of consciousness [Unknown]
  - Head injury [Unknown]
  - Anaemia [Unknown]
  - Oedema [Unknown]
  - Transfusion [Unknown]
